FAERS Safety Report 4989872-X (Version None)
Quarter: 2006Q2

REPORT INFORMATION
  Report Type: 
  Country: None (occurrence: None)
  Receive Date: 20060503
  Receipt Date: 20060426
  Transmission Date: 20061013
  Serious: Yes (Other)
  Sender: FDA-Public Use
  Company Number: US-JNJFOC-20060405833

PATIENT
  Age: 47 Year
  Sex: Female
  Weight: 57 kg

DRUGS (1)
  1. REOPRO [Suspect]
     Indication: ANGIOPLASTY
     Dosage: UNSPECIFIED ABCIXIMAB INFUSION (ABCIXIMAB 2 MG/ML, 5 ML)
     Route: 042

REACTIONS (1)
  - CORONARY ARTERY THROMBOSIS [None]
